FAERS Safety Report 20606118 (Version 1)
Quarter: 2022Q1

REPORT INFORMATION
  Report Type: Report from Study
  Country: IT (occurrence: IT)
  Receive Date: 20220317
  Receipt Date: 20220317
  Transmission Date: 20220423
  Serious: Yes (Hospitalization)
  Sender: FDA-Public Use
  Company Number: IT-CHIESI-2022CHF01223

PATIENT
  Age: 68 Year
  Sex: Female

DRUGS (3)
  1. CANGRELOR [Suspect]
     Active Substance: CANGRELOR
     Indication: Acute coronary syndrome
     Dosage: 30 MICROGRAM/KILOGRAM, (1X)
     Route: 040
     Dates: start: 20210111, end: 20210111
  2. CANGRELOR [Suspect]
     Active Substance: CANGRELOR
     Dosage: UNK, (1X)
     Route: 042
     Dates: start: 20210111, end: 20210111
  3. ROSUVASTATIN [Concomitant]
     Active Substance: ROSUVASTATIN
     Indication: Prophylaxis
     Dosage: UNK UNK, QD
     Route: 048
     Dates: start: 20210111

REACTIONS (1)
  - Anaemia [Recovered/Resolved]

NARRATIVE: CASE EVENT DATE: 20210112
